FAERS Safety Report 4294006-3 (Version None)
Quarter: 2004Q1

REPORT INFORMATION
  Report Type: 
  Country: None (occurrence: None)
  Receive Date: 20040211
  Receipt Date: 20040127
  Transmission Date: 20041129
  Serious: Yes (Death, Hospitalization)
  Sender: FDA-Public Use
  Company Number: FR_040103487

PATIENT
  Age: 61 Year
  Sex: Female
  Weight: 84 kg

DRUGS (9)
  1. HUMALOG [Suspect]
     Indication: DIABETES MELLITUS INSULIN-DEPENDENT
     Dates: end: 20030923
  2. TAREG (VALSARTAN) [Concomitant]
  3. TRACLEER [Concomitant]
  4. STEROGYL [Concomitant]
  5. MOTILIUM [Concomitant]
  6. PREDNISONE [Concomitant]
  7. OSTRAM (CALCIUM PHOSPHATE) [Concomitant]
  8. DILTIAZEM HCL [Concomitant]
  9. CAPTOPRIL [Concomitant]

REACTIONS (21)
  - ALVEOLITIS [None]
  - BLOOD CREATINE PHOSPHOKINASE INCREASED [None]
  - BLOOD PH INCREASED [None]
  - C-REACTIVE PROTEIN INCREASED [None]
  - CONDITION AGGRAVATED [None]
  - GAMMA-GLUTAMYLTRANSFERASE INCREASED [None]
  - GLYCOSURIA [None]
  - HYPOCAPNIA [None]
  - HYPOXIA [None]
  - INFLAMMATION [None]
  - KETONURIA [None]
  - LEUKOCYTOSIS [None]
  - OXYGEN SATURATION DECREASED [None]
  - PCO2 DECREASED [None]
  - PO2 DECREASED [None]
  - PULMONARY FIBROSIS [None]
  - PULMONARY HYPERTENSION [None]
  - RED BLOOD CELL SEDIMENTATION RATE INCREASED [None]
  - RESPIRATORY FAILURE [None]
  - SCLERODERMA [None]
  - SINUS TACHYCARDIA [None]
